FAERS Safety Report 4482222-7 (Version None)
Quarter: 2004Q4

REPORT INFORMATION
  Report Type: 
  Country: None (occurrence: None)
  Receive Date: 20041020
  Receipt Date: 20041001
  Transmission Date: 20050328
  Serious: Yes (Hospitalization, Other)
  Sender: FDA-Public Use
  Company Number: USA041079968

PATIENT
  Sex: Female

DRUGS (4)
  1. EVISTA [Suspect]
  2. PLAVIX [Concomitant]
  3. TRENTAL [Concomitant]
  4. ASPIRIN [Concomitant]

REACTIONS (1)
  - PERIPHERAL VASCULAR DISORDER [None]
